FAERS Safety Report 13030862 (Version 3)
Quarter: 2017Q1

REPORT INFORMATION
  Report Type: Spontaneous
  Country: HU (occurrence: HU)
  Receive Date: 20161215
  Receipt Date: 20170123
  Transmission Date: 20170428
  Serious: Yes (Other)
  Sender: FDA-Public Use
  Company Number: HU-AMGEN-HUNSP2016176526

PATIENT
  Age: 72 Year
  Sex: Female
  Weight: 69 kg

DRUGS (3)
  1. COVERCARD PLUS [Concomitant]
     Active Substance: AMLODIPINE BESYLATE\INDAPAMIDE\PERINDOPRIL ARGININE
     Indication: HYPERTENSION
     Dosage: 1X1 TABLET; FOR YEARS
     Route: 048
  2. ENBREL [Suspect]
     Active Substance: ETANERCEPT
     Indication: RHEUMATOID ARTHRITIS
     Dosage: 50 MG, WEEKLY 1X, FORMULATION: INJECTION
     Route: 058
     Dates: start: 20160719, end: 20160926
  3. DIAPREL [Concomitant]
     Active Substance: GLICLAZIDE
     Indication: DIABETES MELLITUS
     Dosage: 1/2 TABLET FOR YEARS
     Route: 048

REACTIONS (1)
  - Bone lesion [Recovered/Resolved]

NARRATIVE: CASE EVENT DATE: 20160926
